FAERS Safety Report 9107162 (Version 1)
Quarter: 2013Q1

REPORT INFORMATION
  Report Type: Report from Study
  Country: GB (occurrence: GB)
  Receive Date: 20130221
  Receipt Date: 20130221
  Transmission Date: 20140127
  Serious: Yes (Other)
  Sender: FDA-Public Use
  Company Number: GB-AMGEN-GBRCT2011038728

PATIENT
  Age: 66 Year
  Sex: Female

DRUGS (2)
  1. ETANERCEPT [Suspect]
     Indication: PRODUCT USED FOR UNKNOWN INDICATION
     Dosage: 25 MG, QWK
     Dates: start: 20040608, end: 20100115
  2. METHOTREXATE [Concomitant]
     Dosage: UNK
     Dates: start: 20040608

REACTIONS (1)
  - Carcinoma in situ of skin [Recovered/Resolved]
